FAERS Safety Report 10084403 (Version 3)
Quarter: 2014Q2

REPORT INFORMATION
  Report Type: Spontaneous
  Country: US (occurrence: US)
  Receive Date: 20140417
  Receipt Date: 20140425
  Transmission Date: 20141212
  Serious: Yes (Other)
  Sender: FDA-Public Use
  Company Number: US-PFIZER INC-2014107717

PATIENT
  Age: 22 Year
  Sex: Female

DRUGS (22)
  1. IBUPROFEN [Suspect]
     Dosage: 800 MG, UNK
     Dates: start: 20020901
  2. ZOLOFT [Suspect]
     Indication: ANXIETY
     Dosage: UNK
     Route: 048
     Dates: start: 20010920, end: 20021010
  3. ZOLOFT [Suspect]
     Indication: DEPRESSION
  4. HYDROXYZINE PAMOATE [Suspect]
     Dosage: UNK
     Route: 048
     Dates: start: 20030211, end: 20030606
  5. ZITHROMAX [Suspect]
     Dosage: UNK
     Dates: start: 20030226
  6. SPIRONOLACTONE [Suspect]
     Dosage: UNK
     Dates: start: 20020617, end: 20021114
  7. DOXEPIN HCL [Suspect]
     Dosage: UNK
     Route: 048
     Dates: start: 20020404, end: 20021114
  8. AMOXICILLIN [Suspect]
     Indication: FURUNCLE
     Dosage: UNK
     Dates: start: 20020518, end: 20030204
  9. TOPAMAX [Suspect]
     Indication: MIGRAINE
     Dosage: UNK
     Route: 048
     Dates: start: 2001, end: 2002
  10. TOPAMAX [Suspect]
     Indication: HEADACHE
     Dosage: 100 MG
     Route: 048
     Dates: start: 20020104, end: 20020322
  11. TOPAMAX [Suspect]
     Indication: ANXIETY
     Dosage: 100 MG
     Route: 048
     Dates: start: 20020502, end: 20021010
  12. TOPAMAX [Suspect]
     Indication: DEPRESSION
  13. MECLIZINE [Suspect]
     Dosage: UNK
     Route: 048
     Dates: start: 20030204
  14. ZYRTEC [Suspect]
     Dosage: 10 MG, UNK
     Route: 048
     Dates: start: 20001116, end: 20030224
  15. BACTRIM [Suspect]
     Dosage: UNK
     Dates: start: 20021212
  16. AMITRIPTYLINE HCL [Suspect]
     Dosage: UNK
     Dates: start: 20011105, end: 20021114
  17. PRIMACARE [Suspect]
     Dosage: UNK
     Route: 065
     Dates: start: 20021219
  18. ERY-TAB [Suspect]
     Dosage: UNK
     Route: 048
     Dates: start: 20010920, end: 20021114
  19. PHENAZOPYRIDINE [Suspect]
     Dosage: UNK
     Route: 048
     Dates: start: 20021230
  20. MAXALT [Suspect]
     Indication: MIGRAINE
     Dosage: UNK
     Route: 048
     Dates: start: 20020515, end: 20021010
  21. FERROUS SULFATE [Concomitant]
     Dosage: UNK
     Route: 048
     Dates: start: 20030509
  22. IRON [Concomitant]

REACTIONS (4)
  - Pre-eclampsia [Recovered/Resolved]
  - Emotional disorder [Unknown]
  - Dysfunctional uterine bleeding [Unknown]
  - Off label use [Unknown]
